FAERS Safety Report 9696064 (Version 2)
Quarter: 2013Q4

REPORT INFORMATION
  Report Type: Spontaneous
  Country: US (occurrence: US)
  Receive Date: 20131119
  Receipt Date: 20131216
  Transmission Date: 20140711
  Serious: Yes (Hospitalization)
  Sender: FDA-Public Use
  Company Number: US-GLAXOSMITHKLINE-A1050069A

PATIENT
  Age: 61 Year
  Sex: Female
  Weight: 77.3 kg

DRUGS (1)
  1. ADVAIR [Suspect]
     Indication: PRODUCT USED FOR UNKNOWN INDICATION
     Dates: start: 20090922

REACTIONS (2)
  - Cardiac disorder [Unknown]
  - Stent placement [Unknown]
